FAERS Safety Report 6286956-3 (Version None)
Quarter: 2009Q3

REPORT INFORMATION
  Report Type: 
  Country: None (occurrence: None)
  Receive Date: 20090728
  Receipt Date: 20090720
  Transmission Date: 20100115
  Serious: Yes (Hospitalization, Other)
  Sender: FDA-Public Use
  Company Number: US-CVT-090462

PATIENT

DRUGS (19)
  1. RANEXA [Suspect]
     Indication: DRUG USE FOR UNKNOWN INDICATION
     Dosage: 500 MG, BID
     Route: 048
     Dates: start: 20090423
  2. COREG [Concomitant]
     Dosage: 25 MG, BID
  3. ZOCOR [Concomitant]
     Dosage: 80 MG, QD
  4. IMDUR [Concomitant]
     Dosage: 30 MG, BID
  5. ASPIRIN [Concomitant]
     Dosage: 325 MG, QD
  6. PLAVIX [Concomitant]
     Dosage: 75 MG, QD
  7. NPH INSULIN [Concomitant]
     Dosage: 20 UNITS, QD
  8. INSULIN /00030501/ [Concomitant]
     Dosage: UNK, PRN
  9. GLYBURIDE [Concomitant]
     Dosage: 10 MG, BID
  10. METFORMIN                          /00082701/ [Concomitant]
     Dosage: 500 MG, BID
  11. ATACAND [Concomitant]
     Dosage: 4 MG, QD
  12. LASIX [Concomitant]
     Dosage: 40 MG, BID
  13. AMBIEN [Concomitant]
  14. FLOMAX [Concomitant]
     Dosage: 0.4 MG, UNK
  15. ANTABUSE [Concomitant]
     Dosage: 250 MG, QD
  16. AVINZA [Concomitant]
     Dosage: 1 TABLET, PRN
  17. CITALOPRAM                         /00582601/ [Concomitant]
     Dosage: 20 MG, QD
  18. LORTAB [Concomitant]
     Dosage: UNK, PRN
  19. POTASSIUM CHLORIDE [Concomitant]
     Dosage: 20 MEQ, QD

REACTIONS (1)
  - CEREBROVASCULAR ACCIDENT [None]
